FAERS Safety Report 7515820-4 (Version None)
Quarter: 2011Q2

REPORT INFORMATION
  Report Type: 
  Country: None (occurrence: None)
  Receive Date: 20110601
  Receipt Date: 20110525
  Transmission Date: 20111010
  Serious: Yes (Hospitalization)
  Sender: FDA-Public Use
  Company Number: CA-SANOFI-AVENTIS-2011SA033002

PATIENT
  Age: 59 Year
  Sex: Male

DRUGS (5)
  1. MULTAQ [Suspect]
     Route: 048
  2. TAPAZOLE [Suspect]
     Route: 048
  3. CITALOPRAM HYDROBROMIDE [Concomitant]
  4. WARFARIN SODIUM [Concomitant]
  5. METOPROLOL SUCCINATE [Suspect]
     Route: 048

REACTIONS (8)
  - HEART RATE INCREASED [None]
  - BLOOD ALKALINE PHOSPHATASE INCREASED [None]
  - BLOOD THYROID STIMULATING HORMONE DECREASED [None]
  - HEART RATE ABNORMAL [None]
  - URTICARIA [None]
  - GASTRITIS [None]
  - INTERNATIONAL NORMALISED RATIO INCREASED [None]
  - ABDOMINAL PAIN [None]
